FAERS Safety Report 7104847-2 (Version None)
Quarter: 2010Q4

REPORT INFORMATION
  Report Type: 
  Country: None (occurrence: None)
  Receive Date: 20101109
  Receipt Date: 20101102
  Transmission Date: 20110411
  Serious: Yes (Other)
  Sender: FDA-Public Use
  Company Number: BVT-000732

PATIENT
  Sex: Female

DRUGS (2)
  1. KINERET [Suspect]
     Indication: RHEUMATOID ARTHRITIS
     Dosage: 100 MG QD
     Dates: start: 20040507, end: 20051110
  2. METHOTREXATE [Concomitant]

REACTIONS (1)
  - BREAST CANCER FEMALE [None]
